FAERS Safety Report 8326987-2 (Version None)
Quarter: 2012Q2

REPORT INFORMATION
  Report Type: 
  Country: None (occurrence: None)
  Receive Date: 20120501
  Receipt Date: 20111111
  Transmission Date: 20120825
  Serious: No
  Sender: FDA-Public Use
  Company Number: US-SANOFI-AVENTIS-2011SA075330

PATIENT
  Age: 62 Year
  Sex: Male

DRUGS (6)
  1. SOLOSTAR [Suspect]
     Dates: start: 20100401
  2. LANTUS [Suspect]
     Route: 058
     Dates: start: 20100401, end: 20110101
  3. LANTUS [Suspect]
     Dosage: DOSE:70 UNIT(S)
     Route: 058
     Dates: start: 20110101
  4. SOLOSTAR [Suspect]
     Dates: start: 20100401, end: 20110101
  5. APIDRA [Suspect]
     Route: 058
     Dates: start: 20100401, end: 20110101
  6. APIDRA [Suspect]
     Route: 058
     Dates: start: 20110101

REACTIONS (6)
  - MALAISE [None]
  - BLOOD GLUCOSE INCREASED [None]
  - BLOOD GLUCOSE DECREASED [None]
  - MUSCLE SPASMS [None]
  - NAUSEA [None]
  - DIARRHOEA [None]
